FAERS Safety Report 9899949 (Version 2)
Quarter: 2014Q1

REPORT INFORMATION
  Report Type: Spontaneous
  Country: NO (occurrence: NO)
  Receive Date: 20140214
  Receipt Date: 20140214
  Transmission Date: 20141002
  Serious: Yes (Other)
  Sender: FDA-Public Use
  Company Number: NO-PFIZER INC-2013197326

PATIENT
  Age: 69 Year
  Sex: Female

DRUGS (5)
  1. AZITROMAX [Suspect]
     Indication: SINUSITIS
     Dosage: 500 MG, SINGLE
     Route: 048
     Dates: start: 20130628, end: 20130628
  2. SELO-ZOK [Concomitant]
  3. MAREVAN [Concomitant]
  4. IMOVANE [Concomitant]
  5. VIVAL [Concomitant]

REACTIONS (10)
  - Hypoacusis [Not Recovered/Not Resolved]
  - Deafness unilateral [Not Recovered/Not Resolved]
  - Decreased appetite [Not Recovered/Not Resolved]
  - Listless [Not Recovered/Not Resolved]
  - Tremor [Not Recovered/Not Resolved]
  - Palpitations [Not Recovered/Not Resolved]
  - Swelling face [Not Recovered/Not Resolved]
  - Glossodynia [Not Recovered/Not Resolved]
  - Fatigue [Not Recovered/Not Resolved]
  - Wrong technique in drug usage process [Unknown]
